FAERS Safety Report 16056995 (Version 1)
Quarter: 2019Q2

REPORT INFORMATION
  Report Type: Spontaneous
  Country: US (occurrence: US)
  Receive Date: 20190311
  Receipt Date: 20190311
  Transmission Date: 20190711
  Serious: Yes (Other)
  Sender: FDA-Public Use
  Company Number: None

PATIENT
  Age: 64 Year
  Sex: Female
  Weight: 62.1 kg

DRUGS (5)
  1. CIPROFLOXACIN HCL 250 MG TAB [Suspect]
     Active Substance: BENZYL ALCOHOL\CIPROFLOXACIN HYDROCHLORIDE\HYDROCORTISONE
     Indication: URINARY TRACT INFECTION
     Dosage: ?          QUANTITY:1 TABLET(S);?
     Route: 048
     Dates: start: 20190119, end: 20190126
  2. VITAMIN C [Concomitant]
     Active Substance: ASCORBIC ACID
  3. VIT D [Concomitant]
     Active Substance: VITAMIN D NOS
  4. CALCIUM [Concomitant]
     Active Substance: CALCIUM
  5. DOANS [Concomitant]

REACTIONS (6)
  - Chills [None]
  - Myalgia [None]
  - Pain [None]
  - Joint swelling [None]
  - Tendon pain [None]
  - Gait disturbance [None]

NARRATIVE: CASE EVENT DATE: 20190215
